FAERS Safety Report 6450130-8 (Version None)
Quarter: 2009Q4

REPORT INFORMATION
  Report Type: 
  Country: None (occurrence: None)
  Receive Date: 20091123
  Receipt Date: 20091112
  Transmission Date: 20100525
  Serious: Yes (Other)
  Sender: FDA-Public Use
  Company Number: US-ASTRAZENECA-2009SE26301

PATIENT
  Age: 70 Year
  Sex: Male

DRUGS (2)
  1. PRILOSEC OTC [Suspect]
     Route: 048
  2. METOPROLOL HCHT [Concomitant]
     Indication: HYPERTENSION

REACTIONS (1)
  - PERONEAL NERVE PALSY [None]
